FAERS Safety Report 10402163 (Version 1)
Quarter: 2014Q3

REPORT INFORMATION
  Report Type: Spontaneous
  Country: US (occurrence: US)
  Receive Date: 20140822
  Receipt Date: 20140822
  Transmission Date: 20150326
  Serious: Yes (Hospitalization)
  Sender: FDA-Public Use
  Company Number: US-JNJFOC-20140813096

PATIENT
  Age: 20 Year
  Sex: Male

DRUGS (1)
  1. INVEGA SUSTENNA [Suspect]
     Active Substance: PALIPERIDONE PALMITATE
     Indication: PRODUCT USED FOR UNKNOWN INDICATION
     Route: 065

REACTIONS (4)
  - Neuroleptic malignant syndrome [Unknown]
  - Aggression [Unknown]
  - Dehydration [Unknown]
  - Restlessness [Unknown]

NARRATIVE: CASE EVENT DATE: 201406
